FAERS Safety Report 19278655 (Version 1)
Quarter: 2021Q2

REPORT INFORMATION
  Report Type: Spontaneous
  Country: RO (occurrence: RO)
  Receive Date: 20210520
  Receipt Date: 20210520
  Transmission Date: 20210717
  Serious: Yes (Hospitalization, Other)
  Sender: FDA-Public Use
  Company Number: RO-MYLANLABS-2021M1028718

PATIENT
  Age: 37 Year
  Sex: Female
  Weight: 48 kg

DRUGS (1)
  1. ADALIMUMAB [Suspect]
     Active Substance: ADALIMUMAB
     Indication: CROHN^S DISEASE
     Dosage: UNK
     Route: 048
     Dates: start: 201910, end: 202008

REACTIONS (11)
  - Extrapulmonary tuberculosis [Recovering/Resolving]
  - Odynophagia [Unknown]
  - Dysphagia [Unknown]
  - Asthenia [Unknown]
  - Night sweats [Unknown]
  - Weight decreased [Unknown]
  - Salivary hypersecretion [Unknown]
  - Pulmonary tuberculosis [Recovering/Resolving]
  - Condition aggravated [Unknown]
  - Enterobacter infection [Unknown]
  - Tonsillitis [Unknown]

NARRATIVE: CASE EVENT DATE: 202007
